FAERS Safety Report 12289589 (Version 1)
Quarter: 2016Q2

REPORT INFORMATION
  Report Type: Spontaneous
  Country: US (occurrence: None)
  Receive Date: 20160420
  Receipt Date: 20160420
  Transmission Date: 20160815
  Serious: No
  Sender: FDA-Public Use
  Company Number: None

PATIENT
  Age: 41 Year
  Sex: Female

DRUGS (9)
  1. CALCIUM [Concomitant]
     Active Substance: CALCIUM
  2. CEPHALEXIN. [Concomitant]
     Active Substance: CEPHALEXIN
  3. LETROZOLE. [Suspect]
     Active Substance: LETROZOLE
  4. MULT VIT-BET CHW FLO [Concomitant]
  5. ZOLADEX [Concomitant]
     Active Substance: GOSERELIN ACETATE
  6. LORAZEPAM. [Concomitant]
     Active Substance: LORAZEPAM
  7. PREVACID [Concomitant]
     Active Substance: LANSOPRAZOLE
  8. IBRANCE [Suspect]
     Active Substance: PALBOCICLIB
     Indication: BREAST CANCER
     Dosage: QD FOR 21DS
     Route: 048
     Dates: start: 20150407
  9. ACYCLOVIR. [Concomitant]
     Active Substance: ACYCLOVIR

REACTIONS (2)
  - Therapy cessation [None]
  - White blood cell count decreased [None]

NARRATIVE: CASE EVENT DATE: 201603
